FAERS Safety Report 10184917 (Version 3)
Quarter: 2014Q2

REPORT INFORMATION
  Report Type: Spontaneous
  Country: JP (occurrence: JP)
  Receive Date: 20140521
  Receipt Date: 20140618
  Transmission Date: 20141212
  Serious: Yes (Hospitalization, Other)
  Sender: FDA-Public Use
  Company Number: JP-ELI_LILLY_AND_COMPANY-JP201405004129

PATIENT
  Age: 92 Year
  Sex: Female

DRUGS (10)
  1. FORTEO [Suspect]
     Indication: OSTEOPOROSIS
     Dosage: 20 UG, QD
     Route: 058
     Dates: start: 20140510, end: 20140510
  2. FORTEO [Suspect]
     Dosage: 20 UG, QD
     Route: 058
     Dates: start: 20140512, end: 20140513
  3. MEMANTINE HYDROCHLORIDE [Concomitant]
     Dosage: 20 MG, EACH MORNING
     Route: 048
  4. FAMOTIDINE [Concomitant]
     Dosage: 20 MG, BID
     Route: 048
  5. LIMAPROST ALFADEX [Concomitant]
     Dosage: 5 UG, TID
     Route: 048
  6. MICARDIS [Concomitant]
     Indication: HYPERTENSION
     Dosage: 40 MG, EACH EVENING
     Route: 048
  7. AMLODIPINE W/TELMISARTAN [Concomitant]
     Dosage: 1 DF, EACH MORNING
     Route: 048
  8. WARFARIN [Concomitant]
     Dosage: 1.75 MG, EACH MORNING
     Route: 048
  9. FUROSEMIDE [Concomitant]
     Dosage: 20 MG, EACH MORNING
     Route: 048
  10. SPIRONOLACTONE [Concomitant]
     Dosage: 25 MG, BID
     Route: 048

REACTIONS (5)
  - Depressed level of consciousness [Recovered/Resolved]
  - Depressed level of consciousness [Recovered/Resolved]
  - Blood pressure decreased [Recovered/Resolved]
  - Oxygen saturation decreased [Recovered/Resolved]
  - Blood pressure decreased [Recovered/Resolved]
